FAERS Safety Report 9223140 (Version 1)
Quarter: 2013Q2

REPORT INFORMATION
  Report Type: Spontaneous
  Country: US (occurrence: US)
  Receive Date: 20130410
  Receipt Date: 20130410
  Transmission Date: 20140414
  Serious: Yes (Other)
  Sender: FDA-Public Use
  Company Number: US-ASTRAZENECA-2013SE21231

PATIENT
  Age: 58 Year
  Sex: Female
  Weight: 114.8 kg

DRUGS (14)
  1. SYMBICORT PMDI [Suspect]
     Indication: ASTHMA
     Dosage: 160 MCG BID
     Route: 055
     Dates: start: 2009
  2. SYMBICORT PMDI [Suspect]
     Indication: COUGH
     Dosage: 160 MCG BID
     Route: 055
     Dates: start: 2009
  3. SYMBICORT PMDI [Suspect]
     Indication: SLEEP APNOEA SYNDROME
     Dosage: 160 MCG BID
     Route: 055
     Dates: start: 2009
  4. SYMBICORT PMDI [Suspect]
     Indication: ASTHMA
     Dosage: 80 MCG 2 PUFFS BID
     Route: 055
  5. SYMBICORT PMDI [Suspect]
     Indication: COUGH
     Dosage: 80 MCG 2 PUFFS BID
     Route: 055
  6. SYMBICORT PMDI [Suspect]
     Indication: SLEEP APNOEA SYNDROME
     Dosage: 80 MCG 2 PUFFS BID
     Route: 055
  7. ALBUTEROL [Suspect]
     Indication: PRODUCT USED FOR UNKNOWN INDICATION
     Route: 065
     Dates: end: 2009
  8. SINGULAR [Concomitant]
     Indication: ASTHMA
     Route: 048
     Dates: start: 2009
  9. BENICAR HCT [Concomitant]
     Indication: HYPERTENSION
     Dosage: 40, 25 MG DAILY
     Route: 048
     Dates: start: 2007
  10. LOW DOSE ASPIRIN [Concomitant]
     Route: 048
  11. GENERIC ZYRTEC [Concomitant]
     Indication: MULTIPLE ALLERGIES
     Route: 048
  12. VITAMINS [Concomitant]
     Route: 048
  13. OMEGA 3 [Concomitant]
     Route: 048
  14. VITAMIN D [Concomitant]
     Route: 048

REACTIONS (13)
  - Bronchitis [Recovered/Resolved]
  - Fall [Unknown]
  - Loss of consciousness [Unknown]
  - Cough [Recovered/Resolved]
  - Malaise [Recovered/Resolved]
  - Pneumonia [Recovered/Resolved]
  - Visual impairment [Unknown]
  - Adverse event [Unknown]
  - Chest discomfort [Unknown]
  - Bronchial disorder [Unknown]
  - Urticaria [Recovered/Resolved]
  - Off label use [Unknown]
  - Drug dose omission [Unknown]
